FAERS Safety Report 8738910 (Version 5)
Quarter: 2013Q1

REPORT INFORMATION
  Report Type: Spontaneous
  Country: US (occurrence: US)
  Receive Date: 20120823
  Receipt Date: 20130124
  Transmission Date: 20140127
  Serious: Yes (Death, Life-Threatening, Hospitalization, Disabling)
  Sender: FDA-Public Use
  Company Number: US-CELGENEUS-163-21880-12081971

PATIENT
  Age: 72 Year
  Sex: Male

DRUGS (11)
  1. REVLIMID [Suspect]
     Indication: PLASMA CELL MYELOMA
     Dosage: 25 MILLIGRAM
     Route: 048
     Dates: start: 20120804, end: 20120919
  2. REVLIMID [Suspect]
     Indication: PARAPROTEINAEMIA
     Dosage: 25 MILLIGRAM
     Route: 048
     Dates: start: 20121002
  3. REVLIMID [Suspect]
     Indication: PAIN IN EXTREMITY
  4. DEXAMETHASONE [Suspect]
     Indication: PLASMA CELL MYELOMA
     Route: 065
     Dates: start: 20120726
  5. DEXAMETHASONE [Suspect]
     Dosage: DECREASED DOSE
     Route: 065
  6. AVODART [Concomitant]
     Indication: BENIGN PROSTATIC HYPERPLASIA
     Dosage: .5 MILLIGRAM
     Route: 065
     Dates: start: 20120823
  7. AVINZA [Concomitant]
     Indication: PAIN
     Dosage: 120 MILLIGRAM
     Route: 065
     Dates: start: 20120628
  8. CEFEPIME [Concomitant]
     Indication: STAPHYLOCOCCAL INFECTION
     Route: 065
  9. FLAGYL [Concomitant]
     Indication: STAPHYLOCOCCAL INFECTION
     Route: 065
  10. KEFLEX [Concomitant]
     Indication: STAPHYLOCOCCAL INFECTION
     Route: 065
  11. VANCOMYCIN [Concomitant]
     Indication: STAPHYLOCOCCAL INFECTION
     Route: 065

REACTIONS (6)
  - Death [Fatal]
  - Clostridium difficile colitis [Recovered/Resolved]
  - Memory impairment [Recovering/Resolving]
  - Confusional state [Recovering/Resolving]
  - Sepsis [Recovered/Resolved]
  - Hypotension [Recovered/Resolved]
